FAERS Safety Report 5408364-7 (Version None)
Quarter: 2007Q3

REPORT INFORMATION
  Report Type: 
  Country: None (occurrence: None)
  Receive Date: 20070808
  Receipt Date: 20070613
  Transmission Date: 20080115
  Serious: Yes (Other)
  Sender: FDA-Public Use
  Company Number: US-PURDUE-USA_2007_0028029

PATIENT
  Sex: Male
  Weight: 66 kg

DRUGS (6)
  1. OXYCONTIN [Suspect]
     Indication: BACK PAIN
     Dosage: UNK MG, SEE TEXT
     Dates: start: 19990511, end: 20000801
  2. VALIUM [Concomitant]
     Dosage: 5 MG, UNK
  3. PROZAC [Concomitant]
     Dosage: 10 MG, UNK
  4. SOMA [Concomitant]
     Dosage: 350 MG, UNK
  5. LUVOX [Concomitant]
     Dosage: 25 MG, UNK
  6. CLONAZEPAM [Concomitant]

REACTIONS (15)
  - ANOREXIA [None]
  - CONSTIPATION [None]
  - DRUG ABUSER [None]
  - DRUG DEPENDENCE [None]
  - DRUG WITHDRAWAL SYNDROME [None]
  - DYSKINESIA [None]
  - DYSURIA [None]
  - FEELING HOT [None]
  - HYPERHIDROSIS [None]
  - IRRITABILITY [None]
  - PAIN [None]
  - PROSTATIC DISORDER [None]
  - RENAL DISORDER [None]
  - TESTICULAR CYST [None]
  - URINARY TRACT DISORDER [None]
